FAERS Safety Report 5432081-0 (Version None)
Quarter: 2007Q3

REPORT INFORMATION
  Report Type: 
  Country: None (occurrence: None)
  Receive Date: 20070830
  Receipt Date: 20070813
  Transmission Date: 20080115
  Serious: No
  Sender: FDA-Public Use
  Company Number: US-BOEHRINGER INGELHEIM PHARMACEUTICALS, INC.-2007-BP-19047BP

PATIENT
  Age: 70 Year
  Sex: Male

DRUGS (7)
  1. SPIRIVA [Suspect]
     Indication: CHRONIC OBSTRUCTIVE PULMONARY DISEASE
     Route: 055
     Dates: start: 20070101, end: 20070729
  2. ATENOLOL [Concomitant]
  3. COZAAR [Concomitant]
  4. ALLOPURINOL [Concomitant]
     Indication: GOUT
  5. MINISTRAND [Concomitant]
  6. MINIPRESS [Concomitant]
  7. ALBUTEROL [Concomitant]
     Indication: CHRONIC OBSTRUCTIVE PULMONARY DISEASE

REACTIONS (2)
  - ABDOMINAL DISCOMFORT [None]
  - URINE FLOW DECREASED [None]
